FAERS Safety Report 17813398 (Version 1)
Quarter: 2020Q2

REPORT INFORMATION
  Report Type: Spontaneous
  Country: US (occurrence: US)
  Receive Date: 20200521
  Receipt Date: 20200521
  Transmission Date: 20200714
  Serious: No
  Sender: FDA-Public Use
  Company Number: US-PFIZER INC-2018338208

PATIENT
  Age: 54 Year
  Sex: Female

DRUGS (4)
  1. ZITHROMAX [Concomitant]
     Active Substance: AZITHROMYCIN DIHYDRATE
     Dosage: 2 DF, 1X/DAY
     Route: 048
     Dates: start: 20190213
  2. LYRICA [Suspect]
     Active Substance: PREGABALIN
     Indication: CERVICAL RADICULOPATHY
     Dosage: 50 MG, 3X/DAY (TAKE 1 CAP BY MOUTH 3 TIMES DAILY FOR 90 DAYS)
     Route: 048
  3. LYRICA [Suspect]
     Active Substance: PREGABALIN
     Dosage: 75 MG, 3X/DAY (TAKE 1 CAP (75 MG TOTAL) BY MOUTH 3 TIMES DAILY)
     Route: 048
  4. ZITHROMAX [Concomitant]
     Active Substance: AZITHROMYCIN DIHYDRATE
     Dosage: 1 DF, 1X/DAY
     Route: 048

REACTIONS (2)
  - Movement disorder [Unknown]
  - Feeling abnormal [Unknown]
